FAERS Safety Report 15761371 (Version 2)
Quarter: 2019Q2

REPORT INFORMATION
  Report Type: Report from Study
  Country: GB (occurrence: GB)
  Receive Date: 20181226
  Receipt Date: 20190615
  Transmission Date: 20190711
  Serious: Yes (Hospitalization, Other)
  Sender: FDA-Public Use
  Company Number: PHHY2018GB193440

PATIENT
  Sex: Female

DRUGS (1)
  1. COSENTYX [Suspect]
     Active Substance: SECUKINUMAB
     Indication: PSORIASIS
     Dosage: 300 MG, QMO
     Route: 058
     Dates: start: 20170717

REACTIONS (5)
  - Malaise [Unknown]
  - Lower respiratory tract infection [Unknown]
  - Infection [Recovering/Resolving]
  - Candida infection [Recovering/Resolving]
  - Asthma [Unknown]
